FAERS Safety Report 8307805-5 (Version None)
Quarter: 2012Q2

REPORT INFORMATION
  Report Type: 
  Country: None (occurrence: None)
  Receive Date: 20120424
  Receipt Date: 20120409
  Transmission Date: 20120825
  Serious: Yes (Life-Threatening, Hospitalization)
  Sender: FDA-Public Use
  Company Number: KR-WATSON-2012-06351

PATIENT
  Age: 56 Year
  Sex: Female

DRUGS (2)
  1. ENALAPRIL MALEATE [Suspect]
     Indication: HYPERTENSION
     Dosage: 10 MG, DAILY
     Route: 065
  2. CYCLOPHOSPHAMIDE [Suspect]
     Indication: BREAST CANCER
     Dosage: 600 MG/M2, Q 3 WEEKS X 4 CYCLES
     Route: 065

REACTIONS (2)
  - CONVULSION [None]
  - HYPONATRAEMIA [None]
